FAERS Safety Report 4765969-4 (Version None)
Quarter: 2005Q3

REPORT INFORMATION
  Report Type: 
  Country: None (occurrence: None)
  Receive Date: 20050906
  Receipt Date: 20050818
  Transmission Date: 20060218
  Serious: Yes (Death)
  Sender: FDA-Public Use
  Company Number: GBS050818239

PATIENT
  Sex: Female

DRUGS (1)
  1. XIGRIS [Suspect]
     Dates: start: 20050816, end: 20050817

REACTIONS (1)
  - MULTI-ORGAN DISORDER [None]
